APPROVED DRUG PRODUCT: QUINAPRIL HYDROCHLORIDE AND HYDROCHLOROTHIAZIDE
Active Ingredient: HYDROCHLOROTHIAZIDE; QUINAPRIL HYDROCHLORIDE
Strength: 12.5MG;EQ 20MG BASE
Dosage Form/Route: TABLET;ORAL
Application: A201356 | Product #002
Applicant: INVAGEN PHARMACEUTICALS INC
Approved: Apr 20, 2011 | RLD: No | RS: No | Type: DISCN